FAERS Safety Report 11289439 (Version 1)
Quarter: 2015Q3

REPORT INFORMATION
  Report Type: Spontaneous
  Country: US (occurrence: US)
  Receive Date: 20150721
  Receipt Date: 20150721
  Transmission Date: 20151125
  Serious: No
  Sender: FDA-Public Use
  Company Number: US-GALDERMA-US15000414

PATIENT
  Age: 51 Year
  Sex: Female

DRUGS (4)
  1. ORACEA [Suspect]
     Active Substance: DOXYCYCLINE
     Indication: ROSACEA
     Route: 048
  2. FINACEA (AZELAIC ACID) GEL, 15% [Concomitant]
     Indication: ROSACEA
     Dosage: 15%
     Route: 061
  3. GENTLE SENSITIVE SKIN FOAMING CLEANSER [Concomitant]
     Indication: THERAPEUTIC SKIN CARE TOPICAL
     Route: 061
  4. METROCREAM [Suspect]
     Active Substance: METRONIDAZOLE
     Indication: ROSACEA
     Dosage: 0.75%
     Route: 061

REACTIONS (6)
  - Rosacea [Not Recovered/Not Resolved]
  - Erythema [Recovered/Resolved]
  - Drug ineffective [Not Recovered/Not Resolved]
  - Hypersensitivity [Not Recovered/Not Resolved]
  - Swelling face [Recovered/Resolved]
  - Skin exfoliation [Recovered/Resolved]
